FAERS Safety Report 20560443 (Version 3)
Quarter: 2022Q1

REPORT INFORMATION
  Report Type: Spontaneous
  Country: FR (occurrence: None)
  Receive Date: 20220307
  Receipt Date: 20220315
  Transmission Date: 20220423
  Serious: Yes (Other)
  Sender: FDA-Public Use
  Company Number: FR-Merck Healthcare KGaA-9303314

PATIENT
  Age: 87 Year
  Sex: Female

DRUGS (4)
  1. LEVOTHYROXINE SODIUM [Suspect]
     Active Substance: LEVOTHYROXINE SODIUM
     Indication: Post procedural hypothyroidism
     Dates: start: 1986
  2. ASPIRIN DL-LYSINE [Concomitant]
     Active Substance: ASPIRIN DL-LYSINE
     Indication: Product used for unknown indication
     Dosage: 75 UNSPECIFIED UNITS
  3. TROSPIUM CHLORIDE [Concomitant]
     Active Substance: TROSPIUM CHLORIDE
     Indication: Bladder disorder
  4. IRBESARTAN [Concomitant]
     Active Substance: IRBESARTAN
     Indication: Essential hypertension
     Dosage: 75 UNSPECIFIED UNITS

REACTIONS (10)
  - Gastrointestinal surgery [Recovering/Resolving]
  - Procedural complication [Recovering/Resolving]
  - Choking [Unknown]
  - Dizziness [Not Recovered/Not Resolved]
  - Balance disorder [Unknown]
  - Pharyngeal swelling [Unknown]
  - Fall [Unknown]
  - Anxiety [Unknown]
  - Palpitations [Unknown]
  - Drug ineffective [Unknown]

NARRATIVE: CASE EVENT DATE: 20170101
